FAERS Safety Report 24400053 (Version 1)
Quarter: 2024Q4

REPORT INFORMATION
  Report Type: Other
  Country: CA (occurrence: CA)
  Receive Date: 20241005
  Receipt Date: 20241005
  Transmission Date: 20250115
  Serious: Yes (Other)
  Sender: APOTEX
  Company Number: CA-APOTEX-2024AP011523

PATIENT
  Age: 62 Year
  Sex: Female

DRUGS (1)
  1. TERIPARATIDE [Suspect]
     Active Substance: TERIPARATIDE
     Indication: Osteopetrosis
     Dosage: 20 MICROGRAM, QD
     Route: 058

REACTIONS (2)
  - Fall [Unknown]
  - Joint dislocation [Unknown]
